FAERS Safety Report 8416641-0 (Version None)
Quarter: 2012Q2

REPORT INFORMATION
  Report Type: 
  Country: None (occurrence: None)
  Receive Date: 20120323
  Receipt Date: 20110223
  Transmission Date: 20120825
  Serious: Yes (Other)
  Sender: FDA-Public Use
  Company Number: 163-21880-11023063

PATIENT
  Age: 53 Year
  Sex: Female
  Weight: 76.2043 kg

DRUGS (8)
  1. REVLIMID [Suspect]
     Indication: MULTIPLE MYELOMA
     Dosage: 25 MG, 1 IN 1 D, PO ; 15 MG, DAILY FOR 21 DAYS, PO
     Route: 048
     Dates: start: 20100401
  2. REVLIMID [Suspect]
     Indication: MULTIPLE MYELOMA
     Dosage: 25 MG, 1 IN 1 D, PO ; 15 MG, DAILY FOR 21 DAYS, PO
     Route: 048
     Dates: start: 20100801
  3. DIOVAN [Concomitant]
  4. SYNTHROID [Concomitant]
  5. ACYCLOVIR [Concomitant]
  6. LABETALOL HCL [Concomitant]
  7. PROCARDIA XL [Concomitant]
  8. ASPIRIN [Concomitant]

REACTIONS (1)
  - RASH [None]
